FAERS Safety Report 12180241 (Version 1)
Quarter: 2016Q1

REPORT INFORMATION
  Report Type: Spontaneous
  Country: US (occurrence: None)
  Receive Date: 20160314
  Receipt Date: 20160314
  Transmission Date: 20160526
  Serious: No
  Sender: FDA-Public Use
  Company Number: None

PATIENT
  Age: 42 Year
  Sex: Male
  Weight: 90 kg

DRUGS (1)
  1. LISTERINE TOTAL CARE ZERO FRESHMINT [Suspect]
     Active Substance: SODIUM FLUORIDE
     Indication: PRODUCT USED FOR UNKNOWN INDICATION
     Dates: start: 20160309, end: 20160311

REACTIONS (2)
  - Glossodynia [None]
  - Hypogeusia [None]

NARRATIVE: CASE EVENT DATE: 20160311
